FAERS Safety Report 23465440 (Version 2)
Quarter: 2024Q1

REPORT INFORMATION
  Report Type: Report from Study
  Country: US (occurrence: US)
  Receive Date: 20240201
  Receipt Date: 20240207
  Transmission Date: 20240410
  Serious: Yes (Hospitalization, Other)
  Sender: FDA-Public Use
  Company Number: US-UCBSA-2024005154

PATIENT
  Sex: Female

DRUGS (2)
  1. FINTEPLA [Suspect]
     Active Substance: FENFLURAMINE
     Indication: Severe myoclonic epilepsy of infancy
     Dosage: 4.5 MILLILITER, 2X/DAY (BID), FOR 7 DAYS
     Dates: start: 20231221
  2. FINTEPLA [Suspect]
     Active Substance: FENFLURAMINE
     Dosage: 6 MILLILITER, 2X/DAY (BID), THEREAFTER
     Dates: start: 202312

REACTIONS (1)
  - Seizure [Recovered/Resolved]
